FAERS Safety Report 8048055-X (Version None)
Quarter: 2012Q1

REPORT INFORMATION
  Report Type: 
  Country: None (occurrence: None)
  Receive Date: 20120117
  Receipt Date: 20120109
  Transmission Date: 20120608
  Serious: No
  Sender: FDA-Public Use
  Company Number: US-BIOGENIDEC-2012BI001042

PATIENT
  Age: 33 Year
  Sex: Female

DRUGS (2)
  1. ACETAMINOPHEN [Concomitant]
     Indication: PREMEDICATION
  2. AVONEX [Suspect]
     Indication: MULTIPLE SCLEROSIS
     Route: 030
     Dates: start: 20120103

REACTIONS (6)
  - GLOSSITIS [None]
  - GINGIVAL BLEEDING [None]
  - LIP SWELLING [None]
  - CHEILITIS [None]
  - SWOLLEN TONGUE [None]
  - INFLUENZA LIKE ILLNESS [None]
